FAERS Safety Report 9750054 (Version 2)
Quarter: 2015Q3

REPORT INFORMATION
  Report Type: Spontaneous
  Country: DE (occurrence: DE)
  Receive Date: 20131212
  Receipt Date: 20150730
  Transmission Date: 20151125
  Serious: Yes (Hospitalization)
  Sender: FDA-Public Use
  Company Number: DE-GILEAD-DE-CVT-090746

PATIENT
  Age: 72 Year
  Sex: Male

DRUGS (11)
  1. PENTALONG [Concomitant]
     Active Substance: PENTAERYTHRITOL TETRANITRATE
  2. EUTHYROX [Concomitant]
     Active Substance: LEVOTHYROXINE SODIUM
  3. NEBIVOLOL. [Concomitant]
     Active Substance: NEBIVOLOL
  4. DIGITOXIN [Concomitant]
     Active Substance: DIGITOXIN
  5. SIMVASTATIN. [Concomitant]
     Active Substance: SIMVASTATIN
  6. PROVAS COMP [Concomitant]
  7. TORASEMIDE [Concomitant]
     Active Substance: TORSEMIDE
  8. LANTUS [Concomitant]
     Active Substance: INSULIN GLARGINE
  9. RANEXA [Suspect]
     Active Substance: RANOLAZINE
     Indication: PRODUCT USED FOR UNKNOWN INDICATION
     Route: 048
     Dates: start: 20091008, end: 20091103
  10. ALLOPURINOL. [Concomitant]
     Active Substance: ALLOPURINOL
  11. ACTRAPHANE [Concomitant]
     Active Substance: INSULIN HUMAN

REACTIONS (3)
  - Dizziness [Recovered/Resolved]
  - Oedema peripheral [Not Recovered/Not Resolved]
  - Insomnia [Recovered/Resolved]

NARRATIVE: CASE EVENT DATE: 200910
